FAERS Safety Report 13729169 (Version 5)
Quarter: 2017Q4

REPORT INFORMATION
  Report Type: Report from Study
  Country: BR (occurrence: BR)
  Receive Date: 20170707
  Receipt Date: 20171213
  Transmission Date: 20180320
  Serious: Yes (Hospitalization)
  Sender: FDA-Public Use
  Company Number: BR-CELGENEUS-BRA-2017028856

PATIENT
  Age: 57 Year
  Sex: Female
  Weight: 52.9 kg

DRUGS (184)
  1. GLYCOLYZED SALINE [Concomitant]
     Dosage: 250 MILLILITER
     Route: 041
     Dates: start: 20170218, end: 20170218
  2. HUMAN ALBUMIN [Concomitant]
     Active Substance: ALBUMIN HUMAN
     Indication: H1N1 INFLUENZA
     Dosage: 200 MILLILITER
     Route: 041
     Dates: start: 20170217, end: 20170218
  3. HUMAN ALBUMIN [Concomitant]
     Active Substance: ALBUMIN HUMAN
     Dosage: 50 MILLILITER
     Route: 041
     Dates: start: 20170223, end: 20170223
  4. SERUM GLYCOSATED [Concomitant]
     Indication: PRODUCT USED FOR UNKNOWN INDICATION
     Dosage: 250 MILLILITER
     Route: 041
     Dates: start: 20170217, end: 20170218
  5. CISATRACURIUM. [Concomitant]
     Active Substance: CISATRACURIUM
     Dosage: 20 MILLILITER
     Route: 041
     Dates: start: 20170224, end: 20170224
  6. TAZOCIN [Concomitant]
     Active Substance: PIPERACILLIN SODIUM\TAZOBACTAM SODIUM
     Indication: FEBRILE NEUTROPENIA
     Dosage: 4.5 MILLIGRAM
     Route: 041
     Dates: start: 20170217, end: 20170224
  7. ESCITALOPRAM [Concomitant]
     Active Substance: ESCITALOPRAM OXALATE
     Indication: H1N1 INFLUENZA
     Dosage: 10 MILLIGRAM
     Route: 065
     Dates: start: 20170218, end: 20170219
  8. FENTANYL. [Concomitant]
     Active Substance: FENTANYL
     Dosage: 50 MILLILITER
     Route: 041
     Dates: start: 20170301, end: 20170305
  9. STERILE SALINE [Concomitant]
     Dosage: 100 MILLILITER
     Route: 041
     Dates: start: 20170224, end: 20170224
  10. STERILE SALINE [Concomitant]
     Dosage: 144 MILLILITER
     Route: 041
     Dates: start: 20170303, end: 20170303
  11. SODIUM HEPARIN [Concomitant]
     Active Substance: HEPARIN SODIUM
     Indication: H1N1 INFLUENZA
     Dosage: 5000 IU (INTERNATIONAL UNIT)
     Route: 058
     Dates: start: 20170220, end: 20170306
  12. SODIUM HEPARIN [Concomitant]
     Active Substance: HEPARIN SODIUM
     Dosage: 10000 IU (INTERNATIONAL UNIT)
     Route: 058
     Dates: start: 20170226, end: 20170226
  13. MERONEM [Concomitant]
     Active Substance: MEROPENEM
     Indication: H1N1 INFLUENZA
     Dosage: 1 GRAM
     Route: 041
     Dates: start: 20170224, end: 20170225
  14. HYDROCHLOROTHIAZIDE. [Concomitant]
     Active Substance: HYDROCHLOROTHIAZIDE
     Indication: H1N1 INFLUENZA
     Dosage: 25 MILLIGRAM
     Route: 065
     Dates: start: 20170224, end: 20170228
  15. PROPANTELINE [Concomitant]
     Dosage: 1 SACHET
     Route: 062
     Dates: start: 20170311, end: 20170319
  16. ATROPINE. [Concomitant]
     Active Substance: ATROPINE
     Indication: H1N1 INFLUENZA
     Dosage: 1 DROPS
     Route: 047
     Dates: start: 20170306, end: 20170307
  17. MAGNEN B6 [Concomitant]
     Indication: H1N1 INFLUENZA
     Dosage: 1 TABLET (722.2MG/1MG)
     Route: 065
     Dates: start: 20170403, end: 20170406
  18. ONDANSETRON [Concomitant]
     Active Substance: ONDANSETRON
     Indication: H1N1 INFLUENZA
     Dosage: 4 MILLIGRAM
     Route: 041
     Dates: start: 20170405, end: 20170503
  19. GLYCOLYZED SALINE [Concomitant]
     Dosage: 250 MILLILITER
     Route: 041
     Dates: start: 20170223, end: 20170223
  20. GLYCOLYZED SALINE [Concomitant]
     Dosage: 248 MILLILITER
     Route: 041
     Dates: start: 20170305, end: 20170306
  21. HUMAN ALBUMIN [Concomitant]
     Active Substance: ALBUMIN HUMAN
     Dosage: 100 MILLILITER
     Route: 041
     Dates: start: 20170218, end: 20170218
  22. HUMAN ALBUMIN [Concomitant]
     Active Substance: ALBUMIN HUMAN
     Dosage: 50 MILLILITER
     Route: 041
     Dates: start: 20170225, end: 20170225
  23. POTASSIUM CHLORIDE. [Concomitant]
     Active Substance: POTASSIUM CHLORIDE
     Dosage: 20 MILLILITER
     Route: 041
     Dates: start: 20170221, end: 20170221
  24. POTASSIUM CHLORIDE. [Concomitant]
     Active Substance: POTASSIUM CHLORIDE
     Dosage: 10 MILLILITER
     Route: 041
     Dates: start: 20170223, end: 20170223
  25. CISATRACURIUM. [Concomitant]
     Active Substance: CISATRACURIUM
     Dosage: 5 MILLILITER
     Route: 041
     Dates: start: 20170225, end: 20170226
  26. CISATRACURIUM. [Concomitant]
     Active Substance: CISATRACURIUM
     Dosage: 100 MILLILITER
     Route: 041
     Dates: start: 20170301, end: 20170302
  27. DIPHENHYDRAMINE HCL [Concomitant]
     Active Substance: DIPHENHYDRAMINE HYDROCHLORIDE
     Dosage: 50 MILLIGRAM
     Route: 041
     Dates: start: 20170330, end: 20170330
  28. METHYLPREDNISOLONE. [Concomitant]
     Active Substance: METHYLPREDNISOLONE
     Dosage: 40 MILLIGRAM
     Route: 041
     Dates: start: 20170309, end: 20170314
  29. PROPOFOL. [Concomitant]
     Active Substance: PROPOFOL
     Dosage: 300 MILLILITER
     Route: 041
     Dates: start: 20170221, end: 20170221
  30. FLUCONAZOLE. [Concomitant]
     Active Substance: FLUCONAZOLE
     Dosage: 400 MILLIGRAM
     Route: 041
     Dates: start: 20170307, end: 20170314
  31. ESCITALOPRAM [Concomitant]
     Active Substance: ESCITALOPRAM OXALATE
     Dosage: 10 MILLIGRAM (VO)
     Route: 065
     Dates: start: 20170323, end: 20170503
  32. CLONAZEPAN [Concomitant]
     Active Substance: CLONAZEPAM
     Indication: H1N1 INFLUENZA
     Dosage: 2 MILLIGRAM
     Route: 065
     Dates: start: 20170218, end: 20170503
  33. STERILE SALINE [Concomitant]
     Indication: H1N1 INFLUENZA
     Dosage: 100 MILLILITER
     Route: 041
     Dates: start: 20170219, end: 20170219
  34. STERILE SALINE [Concomitant]
     Dosage: 234 MILLILITER
     Route: 041
     Dates: start: 20170220, end: 20170223
  35. STERILE SALINE [Concomitant]
     Dosage: 300 MILLILITER
     Route: 041
     Dates: start: 20170222, end: 20170222
  36. STERILE SALINE [Concomitant]
     Dosage: 250 MILLILITER
     Route: 041
     Dates: start: 20170224, end: 20170224
  37. STERILE SALINE [Concomitant]
     Dosage: 150 MILLILITER
     Route: 041
     Dates: start: 20170225, end: 20170226
  38. STERILE SALINE [Concomitant]
     Dosage: 100 MILLILITER
     Route: 041
     Dates: start: 20170227, end: 20170227
  39. ENDOBULIN [Concomitant]
     Active Substance: HUMAN IMMUNOGLOBULIN G
     Indication: H1N1 INFLUENZA
     Dosage: 30 GRAM
     Route: 041
     Dates: start: 20170219, end: 20170219
  40. MAGNESIUM SULFATE. [Concomitant]
     Active Substance: MAGNESIUM SULFATE
     Dosage: 10 MILLILITER
     Route: 041
     Dates: start: 20170223, end: 20170223
  41. MIDAZOLAM [Concomitant]
     Active Substance: MIDAZOLAM HYDROCHLORIDE
     Indication: H1N1 INFLUENZA
     Dosage: 250 MILLIGRAM
     Route: 041
     Dates: start: 20170222, end: 20170224
  42. MIDAZOLAM [Concomitant]
     Active Substance: MIDAZOLAM HYDROCHLORIDE
     Dosage: 1500 MILLIGRAM
     Route: 041
     Dates: start: 20170302, end: 20170302
  43. LINEZOLID. [Concomitant]
     Active Substance: LINEZOLID
     Indication: H1N1 INFLUENZA
     Dosage: 600 MILLIGRAM
     Route: 041
     Dates: start: 20170225, end: 20170307
  44. CARIAX MOUTHWASH [Concomitant]
     Indication: H1N1 INFLUENZA
     Dosage: 10 MILLILITERS (VO)
     Route: 065
     Dates: start: 20170409, end: 20170503
  45. CC-5013 [Suspect]
     Active Substance: LENALIDOMIDE
     Dosage: 20 MILLIGRAM
     Route: 048
     Dates: start: 20170120, end: 20170223
  46. RITUXIMAB. [Suspect]
     Active Substance: RITUXIMAB
     Dosage: 637.5 MILLIGRAM/SQ. METER
     Route: 041
     Dates: start: 20170120, end: 20170120
  47. RITUXIMAB. [Suspect]
     Active Substance: RITUXIMAB
     Dosage: 637.5 MILLIGRAM/SQ. METER
     Route: 041
     Dates: start: 20170405
  48. GLYCOLYZED SALINE [Concomitant]
     Indication: H1N1 INFLUENZA
     Dosage: 500 MILLILITER
     Route: 041
     Dates: start: 20170217, end: 20170217
  49. GLYCOLYZED SALINE [Concomitant]
     Dosage: 250 MILLILITER
     Route: 041
     Dates: start: 20170221, end: 20170221
  50. GLYCOLYZED SALINE [Concomitant]
     Dosage: 250 MILLILITER
     Route: 041
     Dates: start: 20170226, end: 20170228
  51. GLYCOLYZED SALINE [Concomitant]
     Dosage: 250 MILLILITER
     Route: 041
     Dates: start: 20170304, end: 20170306
  52. HUMAN ALBUMIN [Concomitant]
     Active Substance: ALBUMIN HUMAN
     Dosage: 150 MILLILITER
     Route: 041
     Dates: start: 20170217, end: 20170218
  53. CISATRACURIUM. [Concomitant]
     Active Substance: CISATRACURIUM
     Dosage: 200 MILLILITER
     Route: 041
     Dates: start: 20170227, end: 20170227
  54. HYDROCORTISONE. [Concomitant]
     Active Substance: HYDROCORTISONE
     Indication: H1N1 INFLUENZA
     Dosage: 100 MILLIGRAM
     Route: 041
     Dates: start: 20170217, end: 20170217
  55. HYDROCORTISONE. [Concomitant]
     Active Substance: HYDROCORTISONE
     Dosage: 50 MILLIGRAM
     Route: 041
     Dates: start: 20170223, end: 20170224
  56. METHYLPREDNISOLONE. [Concomitant]
     Active Substance: METHYLPREDNISOLONE
     Dosage: 40 MILLIGRAM
     Route: 041
     Dates: start: 20170217, end: 20170219
  57. PROPOFOL. [Concomitant]
     Active Substance: PROPOFOL
     Dosage: 400 MILLILITER
     Route: 041
     Dates: start: 20170222, end: 20170222
  58. PLASMA LYTE [Concomitant]
     Indication: H1N1 INFLUENZA
     Dosage: 400 MILLILITER
     Route: 041
     Dates: start: 20170218, end: 20170218
  59. NOREPINEPHRINE. [Concomitant]
     Active Substance: NOREPINEPHRINE
     Dosage: 8 MILLIGRAM
     Route: 041
     Dates: start: 20170220, end: 20170220
  60. MIDAZOLAM [Concomitant]
     Active Substance: MIDAZOLAM HYDROCHLORIDE
     Route: 041
     Dates: start: 20170227, end: 20170227
  61. METHADONE [Concomitant]
     Active Substance: METHADONE HYDROCHLORIDE
     Indication: H1N1 INFLUENZA
     Dosage: 5 MILLIGRAMS (SNE)
     Route: 065
     Dates: start: 20170224, end: 20170228
  62. LORAZEPAM. [Concomitant]
     Active Substance: LORAZEPAM
     Indication: H1N1 INFLUENZA
     Dosage: 1 MILLIGRAM (SNE)
     Route: 065
     Dates: start: 20170303, end: 20170321
  63. SODIUM NITROPPRUSSIDE [Concomitant]
     Indication: H1N1 INFLUENZA
     Dosage: 50 MILLIGRAM
     Route: 041
     Dates: start: 20170305, end: 20170306
  64. SIMETHICONE (DIMETHICONE) [Concomitant]
     Active Substance: DIMETHICONE
     Indication: H1N1 INFLUENZA
     Dosage: 40 DROPS (SNE)
     Route: 065
     Dates: start: 20170310, end: 20170503
  65. GLUCOSE [Concomitant]
     Active Substance: DEXTROSE
     Indication: H1N1 INFLUENZA
     Dosage: 250 MILLILITER
     Route: 041
     Dates: start: 20170310, end: 20170310
  66. PREDNISONE. [Concomitant]
     Active Substance: PREDNISONE
     Indication: H1N1 INFLUENZA
     Dosage: 20 MILLIGRAM
     Route: 041
     Dates: start: 20170315, end: 20170409
  67. ENOXAPARIN SODIUM. [Concomitant]
     Active Substance: ENOXAPARIN SODIUM
     Indication: H1N1 INFLUENZA
     Dosage: 40 MILLIGRAM
     Route: 058
     Dates: start: 20170316, end: 20170502
  68. DRAMIN B6 [Concomitant]
     Indication: H1N1 INFLUENZA
     Dosage: 10 MILLILITER
     Route: 041
     Dates: start: 20170423, end: 20170503
  69. GLYCOLYZED SALINE [Concomitant]
     Dosage: 250 MILLILITER
     Route: 041
     Dates: start: 20170219, end: 20170220
  70. GLYCOLYZED SALINE [Concomitant]
     Dosage: 242 MILLILITER
     Route: 041
     Dates: start: 20170220, end: 20170220
  71. GLYCOLYZED SALINE [Concomitant]
     Dosage: 250 MILLILITER
     Route: 041
     Dates: start: 20170301, end: 20170302
  72. GLYCOLYZED SALINE [Concomitant]
     Dosage: 100 MILLILITER
     Route: 041
     Dates: start: 20170310, end: 20170310
  73. HUMAN ALBUMIN [Concomitant]
     Active Substance: ALBUMIN HUMAN
     Dosage: 50 MILLILITER
     Route: 041
     Dates: start: 20170218, end: 20170221
  74. POTASSIUM CHLORIDE. [Concomitant]
     Active Substance: POTASSIUM CHLORIDE
     Dosage: 20 MILLILITER
     Route: 041
     Dates: start: 20170220, end: 20170220
  75. CISATRACURIUM. [Concomitant]
     Active Substance: CISATRACURIUM
     Dosage: 300 MILLIGRAM
     Route: 041
     Dates: start: 20170220, end: 20170220
  76. CISATRACURIUM. [Concomitant]
     Active Substance: CISATRACURIUM
     Dosage: 200 MILLIGRAM
     Route: 041
     Dates: start: 20170221, end: 20170221
  77. CISATRACURIUM. [Concomitant]
     Active Substance: CISATRACURIUM
     Dosage: 300 MILLILITER
     Route: 041
     Dates: start: 20170227, end: 20170228
  78. METHYLPREDNISOLONE. [Concomitant]
     Active Substance: METHYLPREDNISOLONE
     Dosage: 30 MILLIGRAM
     Route: 041
     Dates: start: 20170224, end: 20170227
  79. METHYLPREDNISOLONE. [Concomitant]
     Active Substance: METHYLPREDNISOLONE
     Dosage: 1000 MILLIGRAM
     Route: 041
     Dates: start: 20170228, end: 20170302
  80. PROPOFOL. [Concomitant]
     Active Substance: PROPOFOL
     Indication: H1N1 INFLUENZA
     Dosage: 200 MILLIGRAM
     Route: 041
     Dates: start: 20170217, end: 20170228
  81. PURAN [Concomitant]
     Active Substance: LEVOTHYROXINE SODIUM
     Indication: H1N1 INFLUENZA
     Dosage: 50 MICROGRAM
     Route: 065
     Dates: start: 20170218, end: 20170503
  82. STERILE SALINE [Concomitant]
     Dosage: 150 MILLILITER
     Route: 041
     Dates: start: 20170220, end: 20170220
  83. STERILE SALINE [Concomitant]
     Dosage: 100 MILLILITER
     Route: 041
     Dates: start: 20170220, end: 20170220
  84. CALCIUM GLUCONATE. [Concomitant]
     Active Substance: CALCIUM GLUCONATE
     Dosage: 20 MILLILITER
     Route: 041
     Dates: start: 20170222, end: 20170222
  85. MAGNESIUM SULFATE. [Concomitant]
     Active Substance: MAGNESIUM SULFATE
     Indication: H1N1 INFLUENZA
     Dosage: 20 MILLILITER
     Route: 041
     Dates: start: 20170221, end: 20170221
  86. MAGNESIUM SULFATE. [Concomitant]
     Active Substance: MAGNESIUM SULFATE
     Dosage: 20 MILLILITER
     Route: 041
     Dates: start: 20170307, end: 20170307
  87. DEXMEDETOMIDINE. [Concomitant]
     Active Substance: DEXMEDETOMIDINE
     Dosage: 800 MICROGRAM
     Route: 041
     Dates: start: 20170224, end: 20170224
  88. SUCCINIL COLIN [Concomitant]
     Indication: H1N1 INFLUENZA
     Dosage: 70 MILLIGRAM
     Route: 041
     Dates: start: 20170223, end: 20170223
  89. SEROQUEL [Concomitant]
     Active Substance: QUETIAPINE FUMARATE
     Indication: H1N1 INFLUENZA
     Dosage: 25 MILLIGRAMS (SNE)
     Route: 065
     Dates: start: 20170222, end: 20170222
  90. DIPYRONE [Concomitant]
     Active Substance: DIPYRONE
     Dosage: 2 GRAM
     Route: 041
     Dates: start: 20170308, end: 20170503
  91. MERONEM [Concomitant]
     Active Substance: MEROPENEM
     Dosage: 500 MILLIGRAM
     Route: 041
     Dates: start: 20170307, end: 20170312
  92. DIGESAN [Concomitant]
     Active Substance: BROMOPRIDE
     Indication: H1N1 INFLUENZA
     Dosage: 10 MILLIGRAM
     Route: 041
     Dates: start: 20170301, end: 20170307
  93. DIGESAN [Concomitant]
     Active Substance: BROMOPRIDE
     Dosage: 10 MILLIGRAM
     Route: 041
     Dates: start: 20170310, end: 20170322
  94. PROPANTELINE [Concomitant]
     Indication: H1N1 INFLUENZA
     Dosage: 1 APPLICATION (TTS)
     Route: 062
     Dates: start: 20170311, end: 20170319
  95. REMERON [Concomitant]
     Active Substance: MIRTAZAPINE
     Indication: H1N1 INFLUENZA
     Dosage: 15 MILLIGRAM (VO)
     Route: 065
     Dates: start: 20170420, end: 20170503
  96. GRANULOKINE [Concomitant]
     Active Substance: FILGRASTIM
     Indication: NEUTROPENIA
     Dosage: 300 MICROGRAM
     Route: 041
     Dates: start: 20170502, end: 20170503
  97. GLYCOLYZED SALINE [Concomitant]
     Dosage: 250 MILLILITER
     Route: 041
     Dates: start: 20170223, end: 20170223
  98. GLYCOLYZED SALINE [Concomitant]
     Dosage: 242 MILLILITER
     Route: 041
     Dates: start: 20170224, end: 20170303
  99. POTASSIUM CHLORIDE. [Concomitant]
     Active Substance: POTASSIUM CHLORIDE
     Dosage: 20 MILLILITER
     Route: 041
     Dates: start: 20170222, end: 20170222
  100. PROPOFOL. [Concomitant]
     Active Substance: PROPOFOL
     Dosage: 200 MILLIGRAM
     Route: 041
     Dates: start: 20170220, end: 20170220
  101. PROPOFOL. [Concomitant]
     Active Substance: PROPOFOL
     Dosage: 5 MILLILITER
     Route: 041
     Dates: start: 20170223, end: 20170223
  102. STERILE SALINE [Concomitant]
     Dosage: 100 MILLILITER
     Route: 041
     Dates: start: 20170221, end: 20170221
  103. STERILE SALINE [Concomitant]
     Dosage: 100 MILLILITER
     Route: 041
     Dates: start: 20170309, end: 20170309
  104. CALCIUM GLUCONATE. [Concomitant]
     Active Substance: CALCIUM GLUCONATE
     Indication: H1N1 INFLUENZA
     Dosage: 20 MILLILITER
     Route: 041
     Dates: start: 20170220, end: 20170220
  105. MAGNESIUM SULFATE. [Concomitant]
     Active Substance: MAGNESIUM SULFATE
     Dosage: 20 MILLILITER
     Route: 041
     Dates: start: 20170309, end: 20170309
  106. MIDAZOLAM [Concomitant]
     Active Substance: MIDAZOLAM HYDROCHLORIDE
     Dosage: 750 MILLIGRAM
     Route: 041
     Dates: start: 20170225, end: 20170226
  107. MIDAZOLAM [Concomitant]
     Active Substance: MIDAZOLAM HYDROCHLORIDE
     Route: 041
     Dates: start: 20170228, end: 20170228
  108. HALDOL [Concomitant]
     Active Substance: HALOPERIDOL
     Indication: H1N1 INFLUENZA
     Dosage: 2 MILLIGRAM
     Route: 041
     Dates: start: 20170223, end: 20170223
  109. SEROQUEL [Concomitant]
     Active Substance: QUETIAPINE FUMARATE
     Dosage: 25 MILLIGRAMS (SNE)
     Route: 065
     Dates: start: 20170223, end: 20170225
  110. DIPYRONE [Concomitant]
     Active Substance: DIPYRONE
     Indication: H1N1 INFLUENZA
     Dosage: 2 GRAM
     Route: 041
     Dates: start: 20170222, end: 20170222
  111. MERONEM [Concomitant]
     Active Substance: MEROPENEM
     Dosage: 1 GRAM
     Route: 041
     Dates: start: 20170226, end: 20170307
  112. LORAX [Concomitant]
     Active Substance: LORAZEPAM
     Indication: H1N1 INFLUENZA
     Dosage: 2 MILLIGRAMS (SNE)
     Route: 065
     Dates: start: 20170303, end: 20170325
  113. PROPANTELINE [Concomitant]
     Dosage: 1 APPLICATION (TTS)
     Route: 065
     Dates: start: 20170309, end: 20170319
  114. SLOW K [Concomitant]
     Active Substance: POTASSIUM CHLORIDE
     Indication: H1N1 INFLUENZA
     Dosage: 600 MILLIGRAMS (ENT)
     Route: 065
     Dates: start: 20170319, end: 20170428
  115. XYLOPROCT [Concomitant]
     Indication: H1N1 INFLUENZA
     Dosage: 1 APPLICATION
     Route: 061
     Dates: start: 20170326, end: 20170503
  116. CC-5013 [Suspect]
     Active Substance: LENALIDOMIDE
     Dosage: 15 MILLIGRAM
     Route: 048
     Dates: start: 20170405
  117. TAZOBACTAM [Concomitant]
     Active Substance: TAZOBACTAM
     Indication: PRODUCT USED FOR UNKNOWN INDICATION
     Dosage: 18 GRAM
     Route: 041
     Dates: start: 20170218, end: 20170223
  118. GLYCOLYZED SALINE [Concomitant]
     Dosage: 484 MILLILITER
     Route: 041
     Dates: start: 20170219, end: 20170219
  119. POTASSIUM CHLORIDE. [Concomitant]
     Active Substance: POTASSIUM CHLORIDE
     Dosage: 10 MILLILITER
     Route: 041
     Dates: start: 20170220, end: 20170220
  120. POTASSIUM CHLORIDE. [Concomitant]
     Active Substance: POTASSIUM CHLORIDE
     Dosage: 30 MILLILITER
     Route: 041
     Dates: start: 20170222, end: 20170222
  121. POTASSIUM CHLORIDE. [Concomitant]
     Active Substance: POTASSIUM CHLORIDE
     Dosage: 20 MILLILITER
     Route: 041
     Dates: start: 20170222, end: 20170222
  122. CISATRACURIUM. [Concomitant]
     Active Substance: CISATRACURIUM
     Indication: H1N1 INFLUENZA
     Dosage: 10 MILLIGRAM
     Route: 041
     Dates: start: 20170219, end: 20170221
  123. CISATRACURIUM. [Concomitant]
     Active Substance: CISATRACURIUM
     Dosage: 200 MILLIGRAM
     Route: 041
     Dates: start: 20170219, end: 20170219
  124. CISATRACURIUM. [Concomitant]
     Active Substance: CISATRACURIUM
     Dosage: 10 MILLILITER
     Route: 041
     Dates: start: 20170221, end: 20170221
  125. PROPOFOL. [Concomitant]
     Active Substance: PROPOFOL
     Dosage: 200 MILLILITER
     Route: 041
     Dates: start: 20170224, end: 20170224
  126. STERILE SALINE [Concomitant]
     Dosage: 250 MILLILITER
     Route: 041
     Dates: start: 20170220, end: 20170220
  127. STERILE SALINE [Concomitant]
     Dosage: 144 MILLILITER
     Route: 041
     Dates: start: 20170223, end: 20170223
  128. STERILE SALINE [Concomitant]
     Dosage: 250 MILLILITER
     Route: 041
     Dates: start: 20170307, end: 20170307
  129. NOREPINEPHRINE. [Concomitant]
     Active Substance: NOREPINEPHRINE
     Indication: H1N1 INFLUENZA
     Dosage: 16 MILLIGRAM
     Route: 041
     Dates: start: 20170219, end: 20170219
  130. NOREPINEPHRINE. [Concomitant]
     Active Substance: NOREPINEPHRINE
     Dosage: 8 MILLIGRAM
     Route: 041
     Dates: start: 20170224, end: 20170303
  131. MAGNESIUM SULFATE. [Concomitant]
     Active Substance: MAGNESIUM SULFATE
     Dosage: 20 MILLILITER
     Route: 041
     Dates: start: 20170224, end: 20170224
  132. MAGNESIUM SULFATE. [Concomitant]
     Active Substance: MAGNESIUM SULFATE
     Dosage: 20 MILLILITER
     Route: 041
     Dates: start: 20170310, end: 20170430
  133. MIDAZOLAM [Concomitant]
     Active Substance: MIDAZOLAM HYDROCHLORIDE
     Dosage: 15 MILLIGRAM
     Route: 041
     Dates: start: 20170224, end: 20170224
  134. MIDAZOLAM [Concomitant]
     Active Substance: MIDAZOLAM HYDROCHLORIDE
     Dosage: 250 MILLIGRAM
     Route: 041
     Dates: start: 20170303, end: 20170303
  135. SEROQUEL [Concomitant]
     Active Substance: QUETIAPINE FUMARATE
     Dosage: 12.5 MILLIGRAMS (SNE)
     Route: 065
     Dates: start: 20170305
  136. DIPYRONE [Concomitant]
     Active Substance: DIPYRONE
     Dosage: 2 GRAM
     Route: 041
     Dates: start: 20170305, end: 20170306
  137. PARACETAMOL [Concomitant]
     Active Substance: ACETAMINOPHEN
     Indication: H1N1 INFLUENZA
     Dosage: 40 DROPS (SNE)
     Route: 065
     Dates: start: 20170224, end: 20170224
  138. BROMOPRIDE [Concomitant]
     Active Substance: BROMOPRIDE
     Indication: H1N1 INFLUENZA
     Dosage: 30 MILLIGRAM
     Route: 065
     Dates: start: 20170412, end: 20170503
  139. NEULASTIM [Concomitant]
     Active Substance: PEGFILGRASTIM
     Indication: NEUTROPENIA
     Dosage: 6 MILLIGRAM
     Route: 058
     Dates: start: 20170426, end: 20170426
  140. RITUXIMAB. [Suspect]
     Active Substance: RITUXIMAB
     Indication: LYMPHOMA
     Dosage: 637.5 MILLIGRAM/SQ. METER
     Route: 041
     Dates: start: 20161125, end: 20161216
  141. GLYCOLYZED SALINE [Concomitant]
     Dosage: 100 MILLILITER
     Route: 041
     Dates: start: 20170223, end: 20170223
  142. HUMAN ALBUMIN [Concomitant]
     Active Substance: ALBUMIN HUMAN
     Dosage: 50 MILLILITER
     Route: 041
     Dates: start: 20170222, end: 20170222
  143. POTASSIUM CHLORIDE. [Concomitant]
     Active Substance: POTASSIUM CHLORIDE
     Dosage: 30 MILLILITER
     Route: 041
     Dates: start: 20170223, end: 20170223
  144. POTASSIUM CHLORIDE. [Concomitant]
     Active Substance: POTASSIUM CHLORIDE
     Dosage: 20 MILLILITER
     Route: 041
     Dates: start: 20170224, end: 20170224
  145. CISATRACURIUM. [Concomitant]
     Active Substance: CISATRACURIUM
     Dosage: 300 MILLILITER
     Route: 041
     Dates: start: 20170225, end: 20170226
  146. DIPHENHYDRAMINE HCL [Concomitant]
     Active Substance: DIPHENHYDRAMINE HYDROCHLORIDE
     Indication: H1N1 INFLUENZA
     Dosage: 50 MILLIGRAM
     Route: 041
     Dates: start: 20170217, end: 20170217
  147. METHYLPREDNISOLONE. [Concomitant]
     Active Substance: METHYLPREDNISOLONE
     Indication: H1N1 INFLUENZA
     Dosage: 80 MILLIGRAM
     Route: 041
     Dates: start: 20170217, end: 20170218
  148. PROPOFOL. [Concomitant]
     Active Substance: PROPOFOL
     Dosage: 100 MILLILITER
     Route: 041
     Dates: start: 20170223, end: 20170223
  149. FLUCONAZOLE. [Concomitant]
     Active Substance: FLUCONAZOLE
     Indication: URINARY TRACT INFECTION FUNGAL
     Dosage: 200 MILLIGRAM
     Route: 065
  150. FENTANYL. [Concomitant]
     Active Substance: FENTANYL
     Dosage: 100 MILLILITER
     Route: 041
     Dates: start: 20170221, end: 20170221
  151. FENTANYL. [Concomitant]
     Active Substance: FENTANYL
     Dosage: 50 MILLILITER
     Route: 041
     Dates: start: 20170222, end: 20170227
  152. FENTANYL. [Concomitant]
     Active Substance: FENTANYL
     Dosage: 100 MILLILITER
     Route: 041
     Dates: start: 20170228, end: 20170228
  153. STERILE SALINE [Concomitant]
     Dosage: 100 MILLILITER
     Route: 041
     Dates: start: 20170221, end: 20170221
  154. STERILE SALINE [Concomitant]
     Dosage: 200 MILLILITER
     Route: 041
     Dates: start: 20170222, end: 20170222
  155. STERILE SALINE [Concomitant]
     Dosage: 192 MILLILITER
     Route: 041
     Dates: start: 20170224, end: 20170224
  156. NOREPINEPHRINE. [Concomitant]
     Active Substance: NOREPINEPHRINE
     Dosage: 16 MILLILITER
     Route: 041
     Dates: start: 20170220, end: 20170223
  157. MIDAZOLAM [Concomitant]
     Active Substance: MIDAZOLAM HYDROCHLORIDE
     Dosage: 5 MILLIGRAM
     Route: 041
     Dates: start: 20170224, end: 20170224
  158. DEXMEDETOMIDINE. [Concomitant]
     Active Substance: DEXMEDETOMIDINE
     Indication: H1N1 INFLUENZA
     Dosage: 200 MICROGRAM
     Route: 041
     Dates: start: 20170222, end: 20170222
  159. DEXMEDETOMIDINE. [Concomitant]
     Active Substance: DEXMEDETOMIDINE
     Dosage: 600 MICROGRAM
     Route: 041
     Dates: start: 20170223, end: 20170223
  160. PARACETAMOL [Concomitant]
     Active Substance: ACETAMINOPHEN
     Dosage: 40 DROPS (SNE)
     Route: 065
     Dates: start: 20170225, end: 20170227
  161. BUSCOPAN [Concomitant]
     Active Substance: BUTYLSCOPOLAMINE BROMIDE
     Indication: H1N1 INFLUENZA
     Dosage: 5 MILLILITER
     Route: 055
     Dates: start: 20170306, end: 20170309
  162. PROSTIGMIN [Concomitant]
     Active Substance: NEOSTIGMINE BROMIDE
     Indication: H1N1 INFLUENZA
     Dosage: .5 MILLIGRAM
     Route: 041
     Dates: start: 20170310, end: 20170311
  163. POTASSIUM PHOSPHATE [Concomitant]
     Active Substance: POTASSIUM PHOSPHATE
     Indication: H1N1 INFLUENZA
     Dosage: 20 MILLILITER
     Route: 041
     Dates: start: 20170310, end: 20170310
  164. BEPANTOL DERMA [Concomitant]
     Indication: H1N1 INFLUENZA
     Dosage: 1 APPLICATION
     Route: 061
     Dates: start: 20170409, end: 20170503
  165. CC-5013 [Suspect]
     Active Substance: LENALIDOMIDE
     Indication: LYMPHOMA
     Dosage: 20 MILLIGRAM
     Route: 048
     Dates: start: 20161125, end: 20161221
  166. POTASSIUM CHLORIDE. [Concomitant]
     Active Substance: POTASSIUM CHLORIDE
     Indication: H1N1 INFLUENZA
     Dosage: 20 MILLILITER
     Route: 041
     Dates: start: 20170218, end: 20170218
  167. POTASSIUM CHLORIDE. [Concomitant]
     Active Substance: POTASSIUM CHLORIDE
     Dosage: 20 MILLILITER
     Route: 041
     Dates: start: 20170307, end: 20170307
  168. POTASSIUM CHLORIDE. [Concomitant]
     Active Substance: POTASSIUM CHLORIDE
     Dosage: 20 MILLILITER
     Route: 041
     Dates: start: 20170310, end: 20170327
  169. CISATRACURIUM. [Concomitant]
     Active Substance: CISATRACURIUM
     Dosage: 5 MILLILITER
     Route: 041
     Dates: start: 20170219, end: 20170219
  170. METHYLPREDNISOLONE. [Concomitant]
     Active Substance: METHYLPREDNISOLONE
     Dosage: 60 MILLIGRAM
     Route: 041
     Dates: start: 20170303, end: 20170308
  171. PROPOFOL. [Concomitant]
     Active Substance: PROPOFOL
     Dosage: 300 MILLILITER
     Route: 041
     Dates: start: 20170219, end: 20170219
  172. PANTOPRAZOLE [Concomitant]
     Active Substance: PANTOPRAZOLE
     Indication: H1N1 INFLUENZA
     Dosage: 40 MILLIGRAM
     Route: 041
     Dates: start: 20170218, end: 20170503
  173. FENTANYL. [Concomitant]
     Active Substance: FENTANYL
     Indication: H1N1 INFLUENZA
     Dosage: 50 MILLILITER
     Route: 041
     Dates: start: 20170219, end: 20170220
  174. STERILE SALINE [Concomitant]
     Dosage: 48 MILLILITER
     Route: 041
     Dates: start: 20170222, end: 20170222
  175. STERILE SALINE [Concomitant]
     Dosage: 150 MILLILITER
     Route: 041
     Dates: start: 20170227, end: 20170228
  176. STERILE SALINE [Concomitant]
     Dosage: 50 MILLILITER
     Route: 041
     Dates: start: 20170301, end: 20170302
  177. MIDAZOLAM [Concomitant]
     Active Substance: MIDAZOLAM HYDROCHLORIDE
     Dosage: 2500 MILLIGRAM
     Route: 041
     Dates: start: 20170301, end: 20170301
  178. DEXMEDETOMIDINE. [Concomitant]
     Active Substance: DEXMEDETOMIDINE
     Dosage: 600 MICROGRAM
     Route: 041
     Dates: start: 20170303, end: 20170303
  179. DIPYRONE [Concomitant]
     Active Substance: DIPYRONE
     Dosage: 2 GRAM
     Route: 041
     Dates: start: 20170225, end: 20170227
  180. IVERMECTIN. [Concomitant]
     Active Substance: IVERMECTIN
     Indication: H1N1 INFLUENZA
     Dosage: 12 MILLIGRAM (SNE)
     Route: 065
     Dates: start: 20170228, end: 20170228
  181. PROPANTELINE [Concomitant]
     Dosage: 1 APPLICATION (TTS)
     Route: 065
     Dates: start: 20170307, end: 20170308
  182. ATROPINE. [Concomitant]
     Active Substance: ATROPINE
     Dosage: 1 DROPS
     Route: 047
     Dates: start: 20170307, end: 20170309
  183. MAGNESIUM OXIDE. [Concomitant]
     Active Substance: MAGNESIUM OXIDE
     Indication: H1N1 INFLUENZA
     Dosage: 250MG/5ML (VO)
     Route: 065
     Dates: start: 20170317, end: 20170401
  184. COMPOUND BUSCOPAM [Concomitant]
     Indication: H1N1 INFLUENZA
     Dosage: 5 MILLILITER
     Route: 041
     Dates: start: 20170413, end: 20170503

REACTIONS (4)
  - Acute kidney injury [Recovered/Resolved]
  - Pneumonia influenzal [Recovered/Resolved]
  - General physical health deterioration [Recovered/Resolved]
  - Febrile neutropenia [Recovered/Resolved]

NARRATIVE: CASE EVENT DATE: 20170217
